FAERS Safety Report 19606438 (Version 4)
Quarter: 2021Q4

REPORT INFORMATION
  Report Type: Spontaneous
  Country: US (occurrence: US)
  Receive Date: 20210725
  Receipt Date: 20211226
  Transmission Date: 20220303
  Serious: No
  Sender: FDA-Public Use
  Company Number: US-JNJFOC-20210737841

PATIENT
  Age: 39 Year
  Sex: Female
  Weight: 77.180 kg

DRUGS (1)
  1. TREMFYA [Suspect]
     Active Substance: GUSELKUMAB
     Indication: Psoriasis
     Dosage: TREMFYA 100 MG 1 PRESS INJECTOR
     Route: 058
     Dates: start: 2019

REACTIONS (5)
  - Psoriasis [Recovering/Resolving]
  - Accidental exposure to product [Unknown]
  - Product dose omission issue [Unknown]
  - Wrong technique in product usage process [Unknown]
  - Drug delivery system malfunction [Recovering/Resolving]

NARRATIVE: CASE EVENT DATE: 20210805
